FAERS Safety Report 6831624-X (Version None)
Quarter: 2010Q3

REPORT INFORMATION
  Report Type: 
  Country: None (occurrence: None)
  Receive Date: 20100712
  Receipt Date: 20100702
  Transmission Date: 20110219
  Serious: Yes (Hospitalization)
  Sender: FDA-Public Use
  Company Number: PHHY2010IT43398

PATIENT
  Sex: Male

DRUGS (2)
  1. TEGRETOL [Suspect]
     Indication: EPILEPSY
     Dosage: UNK
     Dates: start: 20100101, end: 20100504
  2. KEPPRA [Suspect]
     Indication: EPILEPSY
     Dosage: UNK
     Dates: start: 20100101, end: 20100504

REACTIONS (1)
  - FACIAL PARESIS [None]
